APPROVED DRUG PRODUCT: VERAPAMIL HYDROCHLORIDE
Active Ingredient: VERAPAMIL HYDROCHLORIDE
Strength: 180MG
Dosage Form/Route: TABLET, EXTENDED RELEASE;ORAL
Application: A074330 | Product #001
Applicant: IVAX PHARMACEUTICALS INC SUB TEVA PHARMACEUTICALS USA
Approved: Jan 31, 1994 | RLD: No | RS: No | Type: DISCN